FAERS Safety Report 17988142 (Version 2)
Quarter: 2020Q3

REPORT INFORMATION
  Report Type: Spontaneous
  Country: US (occurrence: US)
  Receive Date: 20200707
  Receipt Date: 20200714
  Transmission Date: 20201103
  Serious: Yes (Death, Life-Threatening, Hospitalization, Other)
  Sender: FDA-Public Use
  Company Number: US-HIKMA PHARMACEUTICALS USA INC.-US-H14001-20-03165

PATIENT
  Age: 58 Year
  Sex: Female

DRUGS (6)
  1. APIXABAN [Concomitant]
     Active Substance: APIXABAN
     Indication: PRODUCT USED FOR UNKNOWN INDICATION
     Route: 065
  2. PREDNISONE. [Concomitant]
     Active Substance: PREDNISONE
     Indication: PRODUCT USED FOR UNKNOWN INDICATION
     Route: 065
  3. FLECAINIDE [Suspect]
     Active Substance: FLECAINIDE
     Indication: ATRIAL FIBRILLATION
     Route: 065
  4. SYNTHROID [Concomitant]
     Active Substance: LEVOTHYROXINE SODIUM
     Indication: PRODUCT USED FOR UNKNOWN INDICATION
     Route: 065
  5. ALPRAZOLAM. [Concomitant]
     Active Substance: ALPRAZOLAM
     Indication: PRODUCT USED FOR UNKNOWN INDICATION
     Route: 065
  6. METFORMINE [Concomitant]
     Active Substance: METFORMIN HYDROCHLORIDE
     Indication: PRODUCT USED FOR UNKNOWN INDICATION
     Route: 065

REACTIONS (13)
  - Cardiotoxicity [Fatal]
  - Electrocardiogram PR prolongation [Unknown]
  - Bradycardia [Not Recovered/Not Resolved]
  - Toxicity to various agents [Unknown]
  - Arrhythmia [Unknown]
  - Cardiac arrest [Fatal]
  - Hypokalaemia [Not Recovered/Not Resolved]
  - Drug level above therapeutic [Unknown]
  - Acute kidney injury [Recovered/Resolved]
  - Tachycardia [Recovered/Resolved]
  - Cardiogenic shock [Fatal]
  - Myocardial ischaemia [Unknown]
  - Septic shock [Unknown]
